FAERS Safety Report 14220530 (Version 1)
Quarter: 2017Q4

REPORT INFORMATION
  Report Type: Report from Study
  Country: KR (occurrence: KR)
  Receive Date: 20171124
  Receipt Date: 20171124
  Transmission Date: 20180321
  Serious: Yes (Hospitalization, Other)
  Sender: FDA-Public Use
  Company Number: KR-ASTELLAS-2013EU007121

PATIENT
  Age: 76 Year
  Sex: Male
  Weight: 55 kg

DRUGS (19)
  1. ENZALUTAMIDE [Suspect]
     Active Substance: ENZALUTAMIDE
     Indication: PROSTATE CANCER METASTATIC
     Route: 048
     Dates: start: 20120329
  2. CELECOXIB. [Concomitant]
     Active Substance: CELECOXIB
     Indication: MENISCUS INJURY
  3. NOLTEC [Concomitant]
     Indication: GASTRIC ULCER
     Route: 048
     Dates: start: 20140207
  4. CELECOXIB. [Concomitant]
     Active Substance: CELECOXIB
     Indication: OSTEOARTHRITIS
     Route: 048
     Dates: start: 20121005
  5. ENZALUTAMIDE [Suspect]
     Active Substance: ENZALUTAMIDE
     Indication: PROSTATE CANCER METASTATIC
     Dosage: UNK UNK, UNKNOWN FREQ.
     Route: 065
     Dates: start: 20140417
  6. ULCERLMIN [Concomitant]
     Active Substance: SUCRALFATE
     Indication: GASTRIC ULCER
     Route: 048
     Dates: start: 20140126
  7. SILODOSIN [Concomitant]
     Active Substance: SILODOSIN
     Indication: POLLAKIURIA
     Route: 048
     Dates: start: 20110405
  8. BACTROBAN [Concomitant]
     Active Substance: MUPIROCIN\MUPIROCIN CALCIUM
     Indication: FURUNCLE
     Dosage: UNK, TWICE DAILY
     Route: 061
     Dates: start: 20140207
  9. LIPINON [Concomitant]
     Indication: HYPERCHOLESTEROLAEMIA
     Route: 048
     Dates: start: 20120104
  10. PONSTEL [Concomitant]
     Active Substance: MEFENAMIC ACID
     Indication: HEADACHE
     Route: 048
     Dates: start: 20121017
  11. NORZYME [Concomitant]
     Indication: DYSPEPSIA
     Route: 048
     Dates: start: 20110705
  12. LACIDOFIL                          /01699201/ [Concomitant]
     Indication: PROPHYLAXIS AGAINST GASTROINTESTINAL ULCER
     Route: 048
     Dates: start: 20110705
  13. MOTILIUM M [Concomitant]
     Indication: DYSPEPSIA
     Route: 048
     Dates: start: 20110705
  14. NORMAL SALINE [Concomitant]
     Active Substance: SODIUM CHLORIDE
     Indication: METASTASES TO BONE
     Dosage: 100 ML, EVERY 3 MONTHS
     Route: 042
     Dates: start: 20120621
  15. ZOLADEX LA [Concomitant]
     Active Substance: GOSERELIN ACETATE
     Indication: PROSTATE CANCER
     Dosage: 10.8 MG, EVERY 3 MONTHS
     Route: 058
     Dates: start: 20120913
  16. ULTRACET [Concomitant]
     Active Substance: ACETAMINOPHEN\TRAMADOL HYDROCHLORIDE
     Indication: OSTEOARTHRITIS
     Route: 048
     Dates: start: 20121017
  17. GASMOTIN [Concomitant]
     Active Substance: MOSAPRIDE CITRATE
     Indication: GASTRIC ULCER
     Route: 048
     Dates: start: 20140126
  18. ZOMETA [Concomitant]
     Active Substance: ZOLEDRONIC ACID
     Indication: METASTASES TO BONE
     Dosage: 4 MG, EVERY 3 MONTHS
     Route: 042
     Dates: start: 20120621
  19. ULTRACET [Concomitant]
     Active Substance: ACETAMINOPHEN\TRAMADOL HYDROCHLORIDE
     Indication: MENISCUS INJURY

REACTIONS (4)
  - Gastrointestinal stromal tumour [Recovered/Resolved]
  - Gastrointestinal stromal tumour [Recovered/Resolved]
  - Second primary malignancy [Recovered/Resolved]
  - Second primary malignancy [Recovered/Resolved]

NARRATIVE: CASE EVENT DATE: 20130523
